FAERS Safety Report 12175979 (Version 2)
Quarter: 2016Q2

REPORT INFORMATION
  Report Type: Spontaneous
  Country: US (occurrence: US)
  Receive Date: 20160314
  Receipt Date: 20160407
  Transmission Date: 20160815
  Serious: No
  Sender: FDA-Public Use
  Company Number: US-PFIZER INC-2016151296

PATIENT
  Sex: Female

DRUGS (1)
  1. CADUET [Suspect]
     Active Substance: AMLODIPINE BESYLATE\ATORVASTATIN CALCIUM
     Dosage: UNK

REACTIONS (2)
  - Drug hypersensitivity [Unknown]
  - Rash [Unknown]
